FAERS Safety Report 15160226 (Version 2)
Quarter: 2018Q3

REPORT INFORMATION
  Report Type: Report from Study
  Country: GB (occurrence: GB)
  Receive Date: 20180718
  Receipt Date: 20180726
  Transmission Date: 20181010
  Serious: Yes (Other)
  Sender: FDA-Public Use
  Company Number: GB-ALEXION PHARMACEUTICALS INC.-A201808692

PATIENT
  Sex: Male
  Weight: 120 kg

DRUGS (2)
  1. SOLIRIS [Suspect]
     Active Substance: ECULIZUMAB
     Indication: OFF LABEL USE
  2. SOLIRIS [Suspect]
     Active Substance: ECULIZUMAB
     Indication: COLD TYPE HAEMOLYTIC ANAEMIA
     Route: 065

REACTIONS (14)
  - Deafness [Unknown]
  - Ear haemorrhage [Unknown]
  - Blood bilirubin increased [Unknown]
  - Serum ferritin increased [Unknown]
  - C-reactive protein increased [Unknown]
  - Blood lactate dehydrogenase increased [Unknown]
  - Tinnitus [Unknown]
  - Haemoglobin decreased [Unknown]
  - Platelet count decreased [Unknown]
  - Reticulocyte count decreased [Unknown]
  - Haematocrit decreased [Unknown]
  - Alanine aminotransferase increased [Unknown]
  - White blood cell count increased [Unknown]
  - Off label use [Unknown]
